FAERS Safety Report 4915749-1 (Version None)
Quarter: 2006Q1

REPORT INFORMATION
  Report Type: 
  Country: None (occurrence: None)
  Receive Date: 20060217
  Receipt Date: 20060208
  Transmission Date: 20060701
  Serious: Yes (Disabling, Other)
  Sender: FDA-Public Use
  Company Number: US-JNJFOC-20060202631

PATIENT
  Sex: Female

DRUGS (1)
  1. TOPAMAX [Suspect]
     Indication: MIGRAINE PROPHYLAXIS
     Route: 048

REACTIONS (7)
  - ANGLE CLOSURE GLAUCOMA [None]
  - BLINDNESS [None]
  - BLINDNESS UNILATERAL [None]
  - HEADACHE [None]
  - HYPERTENSION [None]
  - VISION BLURRED [None]
  - VOMITING [None]
